FAERS Safety Report 24175233 (Version 1)
Quarter: 2024Q3

REPORT INFORMATION
  Report Type: Report from Study
  Country: CN (occurrence: CN)
  Receive Date: 20240805
  Receipt Date: 20240805
  Transmission Date: 20241017
  Serious: Yes (Other)
  Sender: NOVARTIS
  Company Number: CN-002147023-NVSC2024CN150681

PATIENT
  Age: 58 Year
  Sex: Male
  Weight: 51 kg

DRUGS (2)
  1. COSENTYX [Suspect]
     Active Substance: SECUKINUMAB
     Indication: Psoriasis
     Dosage: TWO INJECTIONS A TIME, QW
     Route: 058
     Dates: start: 202404
  2. COSENTYX [Suspect]
     Active Substance: SECUKINUMAB
     Dosage: TWO INJECTIONS A TIME, QMO
     Route: 058

REACTIONS (5)
  - Upper respiratory tract infection [Recovering/Resolving]
  - Oropharyngeal pain [Recovering/Resolving]
  - Respiratory tract haemorrhage [Recovering/Resolving]
  - Abdominal pain upper [Recovering/Resolving]
  - Eructation [Recovering/Resolving]

NARRATIVE: CASE EVENT DATE: 20240501
